FAERS Safety Report 21109710 (Version 2)
Quarter: 2022Q4

REPORT INFORMATION
  Report Type: Spontaneous
  Country: CA (occurrence: CA)
  Receive Date: 20220721
  Receipt Date: 20221121
  Transmission Date: 20230112
  Serious: Yes (Other)
  Sender: FDA-Public Use
  Company Number: CA-SAMSUNG BIOEPIS-SB-2022-17484

PATIENT
  Age: 43 Year
  Sex: Male
  Weight: 65 kg

DRUGS (4)
  1. INFLIXIMAB [Suspect]
     Active Substance: INFLIXIMAB
     Indication: Crohn^s disease
     Route: 042
  2. ACETAMINOPHEN [Concomitant]
     Active Substance: ACETAMINOPHEN
     Indication: Premedication
     Route: 065
  3. HYDROCORTISONE [Concomitant]
     Active Substance: HYDROCORTISONE
     Indication: Premedication
     Route: 065
  4. REMICADE [Concomitant]
     Active Substance: INFLIXIMAB
     Indication: Product used for unknown indication
     Dosage: UNKNOWN, POWDER FOR SOLUTION INTRAVENOUS
     Route: 065

REACTIONS (11)
  - Condition aggravated [Not Recovered/Not Resolved]
  - Delusion [Not Recovered/Not Resolved]
  - Fistula [Not Recovered/Not Resolved]
  - Fistula discharge [Not Recovered/Not Resolved]
  - Gastric infection [Not Recovered/Not Resolved]
  - Mental disorder [Not Recovered/Not Resolved]
  - Pain [Not Recovered/Not Resolved]
  - Weight fluctuation [Not Recovered/Not Resolved]
  - Intentional product use issue [Not Recovered/Not Resolved]
  - Inappropriate schedule of product administration [Not Recovered/Not Resolved]
  - Off label use [Not Recovered/Not Resolved]
